FAERS Safety Report 5896124-2 (Version None)
Quarter: 2008Q3

REPORT INFORMATION
  Report Type: 
  Country: None (occurrence: None)
  Receive Date: 20080924
  Receipt Date: 20080207
  Transmission Date: 20090109
  Serious: Yes (Hospitalization, Other)
  Sender: FDA-Public Use
  Company Number: US-ASTRAZENECA-2007UW03197

PATIENT
  Age: 17691 Day
  Sex: Male
  Weight: 104.3 kg

DRUGS (3)
  1. SEROQUEL [Suspect]
     Indication: DEPRESSION
     Route: 048
     Dates: start: 20031205, end: 20070324
  2. TRAZODONE HCL [Concomitant]
     Dates: start: 20040101
  3. MIRTAZAPINE [Concomitant]
     Route: 048
     Dates: start: 20050101

REACTIONS (3)
  - CONVULSION [None]
  - SUICIDE ATTEMPT [None]
  - TYPE 2 DIABETES MELLITUS [None]
